FAERS Safety Report 14672904 (Version 7)
Quarter: 2022Q3

REPORT INFORMATION
  Report Type: Report from Study
  Country: CN (occurrence: None)
  Receive Date: 20180323
  Receipt Date: 20220713
  Transmission Date: 20221027
  Serious: Yes (Hospitalization)
  Sender: FDA-Public Use
  Company Number: CN-ROCHE-2087967

PATIENT
  Age: 63 Year
  Sex: Female
  Weight: 44 kg

DRUGS (66)
  1. BEVACIZUMAB [Suspect]
     Active Substance: BEVACIZUMAB
     Indication: Malignant peritoneal neoplasm
     Dosage: THE MOST RECENT DOSE OF BEVACIZUMAB PRIOR TO SERIOUS ADVERSE EVENT WAS ON 26/FEB/2018 (705 MG)
     Route: 042
     Dates: start: 20180129
  2. PACLITAXEL [Suspect]
     Active Substance: PACLITAXEL
     Indication: Malignant peritoneal neoplasm
     Dosage: THE MOST RECENT DOSE OF PACLITAXEL PRIOR TO SERIOUS ADVERSE EVENT WAS ON 26/FEB/2018 (245 MG)
     Route: 042
     Dates: start: 20180104
  3. CARBOPLATIN [Suspect]
     Active Substance: CARBOPLATIN
     Indication: Malignant peritoneal neoplasm
     Dosage: 6 MG/ML*MIN?THE MOST RECENT DOSE OF CARBOPLATIN PRIOR TO SERIOUS ADVERSE EVENT WAS ON 26/FEB/2018 (5
     Route: 042
     Dates: start: 20180104
  4. ATEZOLIZUMAB [Suspect]
     Active Substance: ATEZOLIZUMAB
     Indication: Malignant peritoneal neoplasm
     Dosage: DAY 1 OF EACH 21-DAY CYCLE.?THE MOST RECENT DOSE OF ATEZOLIZUMAB WAS ON 26/FEB/2018.
     Route: 042
     Dates: start: 20180104
  5. INDOMETHACIN [Concomitant]
     Active Substance: INDOMETHACIN
     Dates: start: 20180323, end: 20180323
  6. INDOMETHACIN [Concomitant]
     Active Substance: INDOMETHACIN
     Dates: start: 20180414, end: 20180414
  7. INDOMETHACIN [Concomitant]
     Active Substance: INDOMETHACIN
     Dates: start: 20180507, end: 20180507
  8. INDOMETHACIN [Concomitant]
     Active Substance: INDOMETHACIN
     Dates: start: 20180508, end: 20180508
  9. INDOMETHACIN [Concomitant]
     Active Substance: INDOMETHACIN
     Dates: start: 20180509, end: 20180509
  10. LEUCOGEN (CHINA) [Concomitant]
     Indication: White blood cell count increased
     Dates: start: 20180105
  11. LEUCOGEN (CHINA) [Concomitant]
     Dates: start: 20180315
  12. LEUCOGEN (CHINA) [Concomitant]
     Dates: start: 20180223, end: 20180310
  13. OPRELVEKIN [Concomitant]
     Active Substance: OPRELVEKIN
     Indication: Thrombocytopenia
     Dates: start: 20180211, end: 20180211
  14. OPRELVEKIN [Concomitant]
     Active Substance: OPRELVEKIN
     Dates: start: 20180305, end: 20180310
  15. OPRELVEKIN [Concomitant]
     Active Substance: OPRELVEKIN
     Dates: start: 20180528, end: 20180528
  16. LEUCOGEN (CHINA) [Concomitant]
     Dates: start: 20180129, end: 20180213
  17. LEUCOGEN (CHINA) [Concomitant]
     Dates: start: 20180223, end: 20180310
  18. LEUCOGEN (CHINA) [Concomitant]
     Dates: start: 20180226, end: 20180310
  19. LEUCOGEN (CHINA) [Concomitant]
     Dates: start: 20180413, end: 20180413
  20. LEUCOGEN (CHINA) [Concomitant]
     Dates: start: 20180504, end: 20180504
  21. CLOSTRIDIUM BUTYRICUM SPORES STRAIN M-55 [Concomitant]
     Active Substance: CLOSTRIDIUM BUTYRICUM SPORES STRAIN M-55
     Dates: start: 20180129, end: 20180204
  22. CLOSTRIDIUM BUTYRICUM SPORES STRAIN M-55 [Concomitant]
     Active Substance: CLOSTRIDIUM BUTYRICUM SPORES STRAIN M-55
     Dates: start: 20180211, end: 20180211
  23. CLOSTRIDIUM BUTYRICUM SPORES STRAIN M-55 [Concomitant]
     Active Substance: CLOSTRIDIUM BUTYRICUM SPORES STRAIN M-55
     Dates: start: 20180223, end: 20180319
  24. CLOSTRIDIUM BUTYRICUM SPORES STRAIN M-55 [Concomitant]
     Active Substance: CLOSTRIDIUM BUTYRICUM SPORES STRAIN M-55
     Dates: start: 20180226
  25. CLOSTRIDIUM BUTYRICUM SPORES STRAIN M-55 [Concomitant]
     Active Substance: CLOSTRIDIUM BUTYRICUM SPORES STRAIN M-55
     Dates: start: 20180315
  26. CLOSTRIDIUM BUTYRICUM SPORES STRAIN M-55 [Concomitant]
     Active Substance: CLOSTRIDIUM BUTYRICUM SPORES STRAIN M-55
     Dates: start: 20180322
  27. CLOSTRIDIUM BUTYRICUM SPORES STRAIN M-55 [Concomitant]
     Active Substance: CLOSTRIDIUM BUTYRICUM SPORES STRAIN M-55
     Dates: start: 20180102
  28. CLOSTRIDIUM BUTYRICUM SPORES STRAIN M-55 [Concomitant]
     Active Substance: CLOSTRIDIUM BUTYRICUM SPORES STRAIN M-55
     Dates: start: 20180413, end: 20180413
  29. CLOSTRIDIUM BUTYRICUM SPORES STRAIN M-55 [Concomitant]
     Active Substance: CLOSTRIDIUM BUTYRICUM SPORES STRAIN M-55
     Dates: start: 20180504, end: 20180504
  30. DEXAMETHASONE [Concomitant]
     Active Substance: DEXAMETHASONE
     Route: 048
     Dates: start: 20180225, end: 20180226
  31. DEXAMETHASONE [Concomitant]
     Active Substance: DEXAMETHASONE
     Route: 048
     Dates: start: 20180226, end: 20180227
  32. DEXAMETHASONE [Concomitant]
     Active Substance: DEXAMETHASONE
     Route: 048
     Dates: start: 20180321, end: 20180322
  33. DEXAMETHASONE [Concomitant]
     Active Substance: DEXAMETHASONE
     Route: 048
     Dates: start: 20180322, end: 20180323
  34. DEXAMETHASONE [Concomitant]
     Active Substance: DEXAMETHASONE
     Route: 048
     Dates: start: 20180412, end: 20180413
  35. DEXAMETHASONE [Concomitant]
     Active Substance: DEXAMETHASONE
     Route: 048
     Dates: start: 20180506, end: 20180507
  36. CIMETIDINE [Concomitant]
     Active Substance: CIMETIDINE
     Dates: start: 20180226, end: 20180226
  37. CIMETIDINE [Concomitant]
     Active Substance: CIMETIDINE
     Dates: start: 20180322, end: 20180322
  38. CIMETIDINE [Concomitant]
     Active Substance: CIMETIDINE
     Dates: start: 20180413, end: 20180413
  39. CIMETIDINE [Concomitant]
     Active Substance: CIMETIDINE
     Dates: start: 20180507, end: 20180507
  40. GRANISETRON HYDROCHLORIDE [Concomitant]
     Active Substance: GRANISETRON HYDROCHLORIDE
     Indication: Vomiting
     Dates: start: 20180226, end: 20180226
  41. GRANISETRON HYDROCHLORIDE [Concomitant]
     Active Substance: GRANISETRON HYDROCHLORIDE
     Dates: start: 20180322, end: 20180322
  42. GRANISETRON HYDROCHLORIDE [Concomitant]
     Active Substance: GRANISETRON HYDROCHLORIDE
     Dates: start: 20180413, end: 20180413
  43. GRANISETRON HYDROCHLORIDE [Concomitant]
     Active Substance: GRANISETRON HYDROCHLORIDE
     Dates: start: 20180507, end: 20180507
  44. PROMETHAZINE HYDROCHLORIDE [Concomitant]
     Active Substance: PROMETHAZINE HYDROCHLORIDE
     Indication: Hypersensitivity
     Dates: start: 20180226, end: 20180226
  45. PROMETHAZINE HYDROCHLORIDE [Concomitant]
     Active Substance: PROMETHAZINE HYDROCHLORIDE
     Dates: start: 20180322, end: 20180322
  46. PROMETHAZINE HYDROCHLORIDE [Concomitant]
     Active Substance: PROMETHAZINE HYDROCHLORIDE
     Dates: start: 20180413, end: 20180413
  47. PROMETHAZINE HYDROCHLORIDE [Concomitant]
     Active Substance: PROMETHAZINE HYDROCHLORIDE
     Dates: start: 20180507, end: 20180507
  48. LACTULOSE [Concomitant]
     Active Substance: LACTULOSE
     Indication: Constipation
     Dates: start: 20180227, end: 20180227
  49. LACTULOSE [Concomitant]
     Active Substance: LACTULOSE
     Dates: start: 20180323, end: 20180323
  50. LACTULOSE [Concomitant]
     Active Substance: LACTULOSE
     Dates: start: 20180413, end: 20180413
  51. LEVOFLOXACIN [Concomitant]
     Active Substance: LEVOFLOXACIN
     Dates: start: 20180308, end: 20180310
  52. POTASSIUM CHLORIDE [Concomitant]
     Active Substance: POTASSIUM CHLORIDE
     Dates: start: 20180309
  53. POTASSIUM CHLORIDE [Concomitant]
     Active Substance: POTASSIUM CHLORIDE
     Dates: start: 20180313, end: 20180316
  54. POTASSIUM CHLORIDE [Concomitant]
     Active Substance: POTASSIUM CHLORIDE
     Dates: start: 20180323, end: 20180323
  55. POTASSIUM CHLORIDE [Concomitant]
     Active Substance: POTASSIUM CHLORIDE
     Dates: start: 20180324, end: 20180324
  56. THROMBOPOIETIN [Concomitant]
     Active Substance: THROMBOPOIETIN
     Dates: start: 20180313, end: 20180313
  57. THROMBOPOIETIN [Concomitant]
     Active Substance: THROMBOPOIETIN
     Dates: start: 20180402, end: 20180402
  58. HEPARIN SODIUM [Concomitant]
     Active Substance: HEPARIN SODIUM
     Dates: start: 20180223, end: 20180223
  59. HEPARIN SODIUM [Concomitant]
     Active Substance: HEPARIN SODIUM
     Dates: start: 20180226, end: 20180226
  60. HEPARIN SODIUM [Concomitant]
     Active Substance: HEPARIN SODIUM
     Dates: start: 20180228, end: 20180228
  61. HEPARIN SODIUM [Concomitant]
     Active Substance: HEPARIN SODIUM
     Dates: start: 20180309, end: 20180309
  62. HEPARIN SODIUM [Concomitant]
     Active Substance: HEPARIN SODIUM
     Dates: start: 20180310, end: 20180316
  63. HEPARIN SODIUM [Concomitant]
     Active Substance: HEPARIN SODIUM
     Dates: start: 20180323, end: 20180323
  64. HEPARIN SODIUM [Concomitant]
     Active Substance: HEPARIN SODIUM
     Dates: start: 20180413, end: 20180413
  65. HEPARIN SODIUM [Concomitant]
     Active Substance: HEPARIN SODIUM
     Dates: start: 20180607, end: 20180607
  66. HEPARIN SODIUM [Concomitant]
     Active Substance: HEPARIN SODIUM
     Dates: start: 20180628, end: 20180628

REACTIONS (1)
  - Lower respiratory tract congestion [Recovered/Resolved]

NARRATIVE: CASE EVENT DATE: 20180306
